FAERS Safety Report 7005213-0 (Version None)
Quarter: 2010Q3

REPORT INFORMATION
  Report Type: 
  Country: None (occurrence: None)
  Receive Date: 20100921
  Receipt Date: 20100908
  Transmission Date: 20110219
  Serious: No
  Sender: FDA-Public Use
  Company Number: US-B.I. PHARMACEUTICALS,INC./RIDGEFIELD-2010-BP-10253BP

PATIENT
  Sex: Female

DRUGS (3)
  1. SPIRIVA [Suspect]
     Indication: CHRONIC OBSTRUCTIVE PULMONARY DISEASE
     Dosage: 18 MCG
     Route: 055
     Dates: start: 20100801, end: 20100906
  2. HYZAAR [Concomitant]
     Indication: HYPERTENSION
  3. PRAVASTATIN [Concomitant]
     Indication: BLOOD CHOLESTEROL INCREASED

REACTIONS (7)
  - CYSTITIS [None]
  - DIARRHOEA [None]
  - FAECES DISCOLOURED [None]
  - RENAL PAIN [None]
  - URINARY RETENTION [None]
  - VULVOVAGINAL BURNING SENSATION [None]
  - VULVOVAGINAL ERYTHEMA [None]
